FAERS Safety Report 15667134 (Version 1)
Quarter: 2018Q4

REPORT INFORMATION
  Report Type: Spontaneous
  Country: US (occurrence: US)
  Receive Date: 20181128
  Receipt Date: 20181128
  Transmission Date: 20190205
  Serious: No
  Sender: FDA-Public Use
  Company Number: US-ROCHE-2188092

PATIENT
  Age: 53 Year
  Sex: Female
  Weight: 77.18 kg

DRUGS (3)
  1. OCREVUS [Suspect]
     Active Substance: OCRELIZUMAB
     Indication: MULTIPLE SCLEROSIS
     Dosage: FULL DOSE; ONGOING: YES
     Route: 065
     Dates: start: 20180328
  2. OCREVUS [Suspect]
     Active Substance: OCRELIZUMAB
     Dosage: SPLIT DOSE; ONGOING: NO
     Route: 065
     Dates: start: 20171011
  3. OCREVUS [Suspect]
     Active Substance: OCRELIZUMAB
     Dosage: SPLIT DOSE; ONGOING: NO
     Route: 065
     Dates: start: 20170927

REACTIONS (2)
  - Ill-defined disorder [Not Recovered/Not Resolved]
  - Gait disturbance [Not Recovered/Not Resolved]

NARRATIVE: CASE EVENT DATE: 201807
